FAERS Safety Report 4538187-2 (Version None)
Quarter: 2004Q4

REPORT INFORMATION
  Report Type: 
  Country: None (occurrence: None)
  Receive Date: 20041221
  Receipt Date: 20041208
  Transmission Date: 20050328
  Serious: Yes (Death, Hospitalization)
  Sender: FDA-Public Use
  Company Number: K200401870

PATIENT
  Age: 89 Year
  Sex: Male

DRUGS (10)
  1. SEPTRA [Suspect]
     Dosage: 10 ML, BID, INTRAVENOUS
     Route: 042
     Dates: start: 20040923, end: 20040901
  2. WARFARIN SODIUM [Suspect]
     Indication: ATRIAL FIBRILLATION
     Dosage: 2.5 MG, QD (AT NIGHT), ORAL
     Route: 048
     Dates: start: 19880101, end: 20040922
  3. PHENYTOIN [Suspect]
     Indication: EPILEPSY
     Dosage: INTRAVENOUS
     Route: 042
     Dates: start: 20040923, end: 20040927
  4. STESOLID (DIAZEPAM) [Concomitant]
  5. ABSENOR (VALPROIC ACID) [Concomitant]
  6. OPTIMOL (TIMOLOL MALEATE) [Concomitant]
  7. ZOLOFT [Concomitant]
  8. SOTALOL HCL [Concomitant]
  9. NASONEX [Concomitant]
  10. DETRUSITOL (TOLTERODINE L-TARTRATE) [Concomitant]

REACTIONS (14)
  - APHAGIA [None]
  - C-REACTIVE PROTEIN INCREASED [None]
  - COMA [None]
  - CONDITION AGGRAVATED [None]
  - DRUG INTERACTION [None]
  - GENERAL PHYSICAL HEALTH DETERIORATION [None]
  - HAEMATURIA [None]
  - HAEMOGLOBIN DECREASED [None]
  - HAEMORRHAGE [None]
  - HYPOTONIA [None]
  - INTERNATIONAL NORMALISED RATIO INCREASED [None]
  - PYREXIA [None]
  - SHOCK [None]
  - STATUS EPILEPTICUS [None]
